FAERS Safety Report 6707124-4 (Version None)
Quarter: 2010Q2

REPORT INFORMATION
  Report Type: 
  Country: None (occurrence: None)
  Receive Date: 20100503
  Receipt Date: 20100422
  Transmission Date: 20101027
  Serious: Yes (Other)
  Sender: FDA-Public Use
  Company Number: GB-BRISTOL-MYERS SQUIBB COMPANY-14677959

PATIENT
  Age: 40 Year
  Sex: Male

DRUGS (10)
  1. ABILIFY [Suspect]
     Indication: METABOLIC SYNDROME
     Dosage: DOSE REDUCED {15MG AND INCREASED TO 15MG AGAIN.
     Route: 048
     Dates: start: 20081001
  2. ABILIFY [Suspect]
     Indication: SCHIZOAFFECTIVE DISORDER
     Dosage: DOSE REDUCED {15MG AND INCREASED TO 15MG AGAIN.
     Route: 048
     Dates: start: 20081001
  3. MIRTAZAPINE [Suspect]
  4. RISPERIDONE [Suspect]
  5. QUETIAPINE [Suspect]
  6. DULOXETINE HYDROCHLORIDE [Suspect]
  7. SODIUM VALPROATE [Suspect]
  8. EFFEXOR [Concomitant]
     Indication: DEPRESSION
     Route: 048
  9. LITHIUM [Concomitant]
     Route: 048
  10. ANTIDIABETIC PRODUCT [Concomitant]
     Indication: TYPE 2 DIABETES MELLITUS
     Route: 048

REACTIONS (3)
  - HYPOTHYROIDISM [None]
  - LIVER FUNCTION TEST ABNORMAL [None]
  - METABOLIC SYNDROME [None]
